FAERS Safety Report 7240429-X (Version None)
Quarter: 2011Q1

REPORT INFORMATION
  Report Type: 
  Country: None (occurrence: None)
  Receive Date: 20110124
  Receipt Date: 20101021
  Transmission Date: 20110831
  Serious: Yes (Hospitalization, Other)
  Sender: FDA-Public Use
  Company Number: US-BAYER-201039168NA

PATIENT
  Sex: Female
  Weight: 68.027 kg

DRUGS (5)
  1. TOPAMAX [Concomitant]
     Indication: MIGRAINE PROPHYLAXIS
     Dosage: 4 UNK, UNK
     Route: 048
  2. YAZ [Suspect]
     Indication: CONTRACEPTION
     Dosage: UNK
     Route: 048
     Dates: start: 20080122, end: 20080401
  3. YASMIN [Suspect]
     Indication: PRODUCT USED FOR UNKNOWN INDICATION
     Dosage: UNK
  4. IBUPROFEN [Concomitant]
  5. ALEVE [Concomitant]

REACTIONS (5)
  - PULMONARY EMBOLISM [None]
  - CHEST PAIN [None]
  - FLANK PAIN [None]
  - DYSPNOEA [None]
  - PULMONARY INFARCTION [None]
